FAERS Safety Report 24555316 (Version 2)
Quarter: 2024Q4

REPORT INFORMATION
  Report Type: Spontaneous
  Country: US (occurrence: US)
  Receive Date: 20241028
  Receipt Date: 20241118
  Transmission Date: 20250115
  Serious: No
  Sender: MYLAN
  Company Number: US-MYLANLABS-2024M1094816

PATIENT
  Age: 82 Year
  Sex: Female
  Weight: 74.39 kg

DRUGS (2)
  1. GABAPENTIN [Suspect]
     Active Substance: GABAPENTIN
     Indication: Pain
     Dosage: 100 MILLIGRAM, TID (THREE TIMES A DAY)
     Route: 065
  2. GABAPENTIN [Suspect]
     Active Substance: GABAPENTIN
     Indication: Neuropathy peripheral
     Dosage: 700 MILLIGRAM, QD (7 TABS)
     Route: 065
     Dates: start: 2024

REACTIONS (1)
  - Off label use [Unknown]
